FAERS Safety Report 14305482 (Version 1)
Quarter: 2017Q4

REPORT INFORMATION
  Report Type: Spontaneous
  Country: JP (occurrence: JP)
  Receive Date: 20171219
  Receipt Date: 20171219
  Transmission Date: 20180321
  Serious: Yes (Life-Threatening, Other)
  Sender: FDA-Public Use
  Company Number: JP-OTSUKA-BJ20101062

PATIENT
  Age: 17 Day

DRUGS (1)
  1. ABILIFY [Suspect]
     Active Substance: ARIPIPRAZOLE
     Indication: SCHIZOPHRENIA
     Dosage: UNK
     Route: 064

REACTIONS (3)
  - Cyanosis neonatal [Recovered/Resolved]
  - Foetal exposure during pregnancy [Unknown]
  - Cardio-respiratory arrest neonatal [Unknown]
